FAERS Safety Report 19125489 (Version 2)
Quarter: 2021Q2

REPORT INFORMATION
  Report Type: Spontaneous
  Country: US (occurrence: US)
  Receive Date: 20210413
  Receipt Date: 20210416
  Transmission Date: 20210717
  Serious: No
  Sender: FDA-Public Use
  Company Number: US-ELI_LILLY_AND_COMPANY-US202104004239

PATIENT
  Sex: Female

DRUGS (2)
  1. TALTZ [Suspect]
     Active Substance: IXEKIZUMAB
     Indication: PSORIASIS
     Dosage: 80 MG, OTHER (EVERY TWO WEEKS)
     Route: 065
  2. TALTZ [Suspect]
     Active Substance: IXEKIZUMAB
     Indication: PSORIATIC ARTHROPATHY
     Dosage: 160 MG, UNKNOWN
     Route: 065
     Dates: start: 20210309

REACTIONS (7)
  - Injection site erythema [Unknown]
  - Pruritus [Unknown]
  - Injection site pruritus [Unknown]
  - Swelling [Unknown]
  - Lymphadenopathy [Recovered/Resolved]
  - Injection site swelling [Unknown]
  - Erythema [Unknown]
